FAERS Safety Report 6269391-3 (Version None)
Quarter: 2009Q3

REPORT INFORMATION
  Report Type: 
  Country: None (occurrence: None)
  Receive Date: 20090713
  Receipt Date: 20090625
  Transmission Date: 20100115
  Serious: Yes (Hospitalization)
  Sender: FDA-Public Use
  Company Number: 318550

PATIENT
  Age: 69 Year
  Sex: Female

DRUGS (13)
  1. METHOTREXATE [Suspect]
     Indication: RHEUMATOID ARTHRITIS
     Dosage: 15 MG, SUBCUTANEOUS
     Route: 058
     Dates: start: 20070317, end: 20090123
  2. ALENDRONATE SODIUM [Concomitant]
  3. FOLIC ACID [Concomitant]
  4. (FUROSEMIDE) [Concomitant]
  5. (GLICLAZIDE) [Concomitant]
  6. (LANSOPRAZOLE) [Concomitant]
  7. MORPHINE [Concomitant]
  8. (MOVICOL /01053601/) [Concomitant]
  9. QUETIAPINE FUMARATE [Concomitant]
  10. RAMIPRIL [Concomitant]
  11. (VALPROATE SEMISODIUM) [Concomitant]
  12. (SIMVASTATIN-MEPHA) [Concomitant]
  13. (ZOPICLONE) [Concomitant]

REACTIONS (3)
  - CARDIAC FAILURE CONGESTIVE [None]
  - LOWER RESPIRATORY TRACT INFECTION [None]
  - PANCYTOPENIA [None]
